FAERS Safety Report 24278065 (Version 1)
Quarter: 2024Q3

REPORT INFORMATION
  Report Type: Spontaneous
  Country: US (occurrence: US)
  Receive Date: 20240903
  Receipt Date: 20240903
  Transmission Date: 20241017
  Serious: No
  Sender: PHARMALEX
  Company Number: US-PharmaLex US Corporation-2161106

PATIENT
  Age: 73 Year
  Sex: Female

DRUGS (1)
  1. CYTALUX [Suspect]
     Active Substance: PAFOLACIANINE SODIUM
     Indication: Product used for unknown indication
     Route: 042
     Dates: start: 20240806, end: 20240806

REACTIONS (1)
  - Drug effect less than expected [Unknown]
